FAERS Safety Report 6959470-7 (Version None)
Quarter: 2010Q3

REPORT INFORMATION
  Report Type: 
  Country: None (occurrence: None)
  Receive Date: 20100827
  Receipt Date: 20100816
  Transmission Date: 20110219
  Serious: Yes (Death)
  Sender: FDA-Public Use
  Company Number: 2010103109

PATIENT
  Age: 43 Year
  Sex: Male

DRUGS (2)
  1. FRAGMIN [Suspect]
     Dosage: 5000 IU, DAILY,  15000 IU, DAILY
     Dates: end: 20100401
  2. FRAGMIN [Suspect]

REACTIONS (1)
  - NEOPLASM MALIGNANT [None]
